FAERS Safety Report 5677902-1 (Version None)
Quarter: 2008Q1

REPORT INFORMATION
  Report Type: 
  Country: None (occurrence: None)
  Receive Date: 20080319
  Receipt Date: 20080306
  Transmission Date: 20080703
  Serious: Yes (Other)
  Sender: FDA-Public Use
  Company Number: OPER20080042

PATIENT
  Sex: Male

DRUGS (3)
  1. OPANA [Suspect]
     Dosage: 5 MG, INTRA-NASAL
     Route: 045
  2. PERCOCET [Concomitant]
  3. XANAX [Concomitant]

REACTIONS (19)
  - ABNORMAL DREAMS [None]
  - ALCOHOL USE [None]
  - BOREDOM [None]
  - CEREBRAL DISORDER [None]
  - CONFUSIONAL STATE [None]
  - DEHYDRATION [None]
  - DRUG DEPENDENCE [None]
  - EPISTAXIS [None]
  - EUPHORIC MOOD [None]
  - EYE PAIN [None]
  - HALLUCINATION [None]
  - INCORRECT ROUTE OF DRUG ADMINISTRATION [None]
  - INTENTIONAL DRUG MISUSE [None]
  - IRRITABILITY [None]
  - LUNG DISORDER [None]
  - MUCOSAL DISCOLOURATION [None]
  - PRURITUS [None]
  - PSEUDOPARALYSIS [None]
  - RHINORRHOEA [None]
